FAERS Safety Report 6153659-5 (Version None)
Quarter: 2009Q2

REPORT INFORMATION
  Report Type: 
  Country: None (occurrence: None)
  Receive Date: 20090409
  Receipt Date: 20090403
  Transmission Date: 20091009
  Serious: Yes (Death, Life-Threatening, Hospitalization, Other)
  Sender: FDA-Public Use
  Company Number: 2009SP007260

PATIENT
  Age: 40 Year
  Sex: Female
  Weight: 100 kg

DRUGS (7)
  1. PEG-INTRON [Suspect]
     Indication: HEPATITIS C
     Dosage: 150 MCG;QW;IV
     Route: 042
     Dates: start: 20080208, end: 20080929
  2. REBETOL [Suspect]
     Indication: HEPATITIS C
     Dosage: 600 MG;BID;PO
     Route: 048
     Dates: start: 20080208, end: 20080929
  3. CITALOPRAM HYDROBROMIDE [Concomitant]
  4. FUROSEMID [Concomitant]
  5. KALETRA [Concomitant]
  6. L-POLAMIDON (LEVO-METHADONE) [Concomitant]
  7. SANTYL [Concomitant]

REACTIONS (10)
  - ANAEMIA HAEMOLYTIC AUTOIMMUNE [None]
  - DRUG INEFFECTIVE [None]
  - EVANS SYNDROME [None]
  - HAEMATOMA [None]
  - PETECHIAE [None]
  - SEPSIS [None]
  - SEPTIC SHOCK [None]
  - THROMBOCYTOPENIA [None]
  - TYPE 2 DIABETES MELLITUS [None]
  - VAGINAL HAEMORRHAGE [None]
